FAERS Safety Report 9838656 (Version 1)
Quarter: 2014Q1

REPORT INFORMATION
  Report Type: Spontaneous
  Country: FR (occurrence: None)
  Receive Date: 20140116
  Receipt Date: 20140116
  Transmission Date: 20141002
  Serious: Yes (Disabling)
  Sender: FDA-Public Use
  Company Number: DE-SEPTODONT-201301684

PATIENT
  Age: 56 Year
  Sex: Female

DRUGS (1)
  1. ORAVERSE [Suspect]
     Indication: ANAESTHESIA REVERSAL
     Route: 004
     Dates: start: 20131203

REACTIONS (3)
  - Dysgeusia [None]
  - Nausea [None]
  - Retching [None]
